FAERS Safety Report 7115936-0 (Version None)
Quarter: 2010Q4

REPORT INFORMATION
  Report Type: 
  Country: None (occurrence: None)
  Receive Date: 20101122
  Receipt Date: 20100617
  Transmission Date: 20110411
  Serious: Yes (Other)
  Sender: FDA-Public Use
  Company Number: US-BAYER-201019107NA

PATIENT
  Age: 33 Year
  Sex: Female
  Weight: 68 kg

DRUGS (8)
  1. YASMIN [Suspect]
     Indication: PRODUCT USED FOR UNKNOWN INDICATION
     Route: 048
     Dates: start: 20080301, end: 20080501
  2. OCELLA [Suspect]
     Indication: PRODUCT USED FOR UNKNOWN INDICATION
     Route: 048
     Dates: start: 20080501, end: 20090901
  3. YAZ [Suspect]
     Indication: CONTRACEPTION
     Route: 048
     Dates: start: 20080101, end: 20081101
  4. CENTRUM VITAMINS [Concomitant]
  5. PREVACID [Concomitant]
  6. TAMIFLU [Concomitant]
     Dates: start: 20080301
  7. ONDANSETRON [Concomitant]
     Dates: start: 20080701
  8. FLUOCINONIDE [Concomitant]
     Dates: start: 20081201

REACTIONS (10)
  - ABDOMINAL DISTENSION [None]
  - ABDOMINAL PAIN UPPER [None]
  - CHOLECYSTITIS CHRONIC [None]
  - CHOLELITHIASIS [None]
  - CHOLESTEROSIS [None]
  - CONSTIPATION [None]
  - DIARRHOEA [None]
  - FAT INTOLERANCE [None]
  - NAUSEA [None]
  - VOMITING [None]
